FAERS Safety Report 8903546 (Version 1)
Quarter: 2012Q4

REPORT INFORMATION
  Report Type: 
  Country: JP (occurrence: JP)
  Receive Date: 20121113
  Receipt Date: 20121113
  Transmission Date: 20130627
  Serious: Yes (Hospitalization)
  Sender: FDA-Public Use
  Company Number: JP-WATSON-2012-19203

PATIENT
  Age: 56 Year
  Sex: Female

DRUGS (2)
  1. PREDNISONE (UNKNOWN) [Suspect]
     Indication: ACUTE INTERSTITIAL PNEUMONITIS
     Dosage: 50 mg, daily
     Route: 065
  2. VOGLIBOSE [Concomitant]
     Indication: DIABETES MELLITUS
     Dosage: 600 mg, daily
     Route: 065

REACTIONS (2)
  - Pneumatosis intestinalis [Recovered/Resolved]
  - Diabetes mellitus [Unknown]
